FAERS Safety Report 7464421-5 (Version None)
Quarter: 2011Q2

REPORT INFORMATION
  Report Type: 
  Country: None (occurrence: None)
  Receive Date: 20110509
  Receipt Date: 20110504
  Transmission Date: 20111010
  Serious: No
  Sender: FDA-Public Use
  Company Number: US-PFIZER INC-2011096784

PATIENT
  Age: 61 Year
  Sex: Male

DRUGS (2)
  1. DETROL LA [Suspect]
     Dosage: 6 MG, UNK
     Route: 048
  2. DETROL LA [Suspect]
     Dosage: 4 MG, UNK
     Route: 048

REACTIONS (2)
  - BLADDER PAIN [None]
  - DIZZINESS [None]
